FAERS Safety Report 23587550 (Version 2)
Quarter: 2024Q2

REPORT INFORMATION
  Report Type: Spontaneous
  Country: US (occurrence: US)
  Receive Date: 20240301
  Receipt Date: 20240403
  Transmission Date: 20240715
  Serious: No
  Sender: FDA-Public Use
  Company Number: US-SA-SAC20240226000904

PATIENT
  Age: 39 Year
  Sex: Female

DRUGS (2)
  1. DUPIXENT [Suspect]
     Active Substance: DUPILUMAB
     Indication: Asthma
     Dosage: 200 MG, QOW
     Route: 058
  2. WIXELA INHUB [Concomitant]
     Active Substance: FLUTICASONE PROPIONATE\SALMETEROL XINAFOATE
     Indication: Asthma

REACTIONS (11)
  - Nasal congestion [Unknown]
  - Parosmia [Unknown]
  - Sleep disorder due to a general medical condition [Unknown]
  - Oligomenorrhoea [Unknown]
  - Respiratory tract congestion [Unknown]
  - Dyspnoea [Unknown]
  - Anxiety [Unknown]
  - Eating disorder [Unknown]
  - Social problem [Unknown]
  - Decreased activity [Unknown]
  - Asthma [Unknown]
